FAERS Safety Report 7288249-4 (Version None)
Quarter: 2011Q1

REPORT INFORMATION
  Report Type: 
  Country: None (occurrence: None)
  Receive Date: 20110211
  Receipt Date: 20110201
  Transmission Date: 20110831
  Serious: Yes (Hospitalization, Other)
  Sender: FDA-Public Use
  Company Number: JP-ROCHE-742549

PATIENT
  Sex: Female
  Weight: 60 kg

DRUGS (13)
  1. LEVOFOLINATE [Concomitant]
     Route: 041
     Dates: start: 20090813, end: 20100205
  2. TAKEPRON [Concomitant]
     Route: 048
     Dates: start: 20100423
  3. ELPLAT [Suspect]
     Indication: COLON CANCER METASTATIC
     Route: 041
     Dates: start: 20090813, end: 20100205
  4. ELPLAT [Suspect]
     Route: 041
     Dates: start: 20100618, end: 20101029
  5. AVASTIN [Suspect]
     Indication: COLON CANCER METASTATIC
     Route: 041
     Dates: start: 20090813, end: 20100203
  6. AVASTIN [Suspect]
     Route: 041
     Dates: start: 20100709, end: 20101029
  7. TS-1 [Suspect]
     Route: 048
     Dates: start: 20100618, end: 20101029
  8. ALLEGRA [Concomitant]
     Route: 048
     Dates: start: 20100402
  9. RESTAMIN [Concomitant]
     Dosage: NOTE:DOSAGE IS UNCERTAIN.
     Route: 048
     Dates: start: 20100709
  10. TS-1 [Suspect]
     Indication: COLON CANCER METASTATIC
     Dosage: DOSAGE IS UNCERTAIN
     Route: 048
     Dates: start: 20100219, end: 20100604
  11. 5-FU [Concomitant]
     Route: 041
     Dates: start: 20090813, end: 20100205
  12. DEXART [Concomitant]
     Route: 042
     Dates: start: 20100618
  13. GRANISETRON HCL [Concomitant]
     Route: 042
     Dates: start: 20100618, end: 20100903

REACTIONS (9)
  - DISSEMINATED INTRAVASCULAR COAGULATION [None]
  - URTICARIA [None]
  - CHILLS [None]
  - WHITE BLOOD CELL COUNT DECREASED [None]
  - HAEMOLYTIC ANAEMIA [None]
  - CHEST DISCOMFORT [None]
  - PLATELET COUNT DECREASED [None]
  - PRURITUS [None]
  - NAUSEA [None]
